FAERS Safety Report 24391392 (Version 1)
Quarter: 2024Q4

REPORT INFORMATION
  Report Type: Spontaneous
  Country: IN (occurrence: IN)
  Receive Date: 20241003
  Receipt Date: 20241003
  Transmission Date: 20250114
  Serious: Yes (Other)
  Sender: PFIZER
  Company Number: IN-PFIZER INC-202400266755

PATIENT
  Sex: Female

DRUGS (6)
  1. PREDNISOLONE [Suspect]
     Active Substance: PREDNISOLONE
     Indication: Neuromyelitis optica spectrum disorder
     Dosage: 40 MG, 1X/DAY
     Route: 064
  2. METHYLPREDNISOLONE SODIUM SUCCINATE [Suspect]
     Active Substance: METHYLPREDNISOLONE SODIUM SUCCINATE
     Indication: Neuromyelitis optica spectrum disorder
     Dosage: 1 G
     Route: 064
  3. RACECADOTRIL [Concomitant]
     Active Substance: RACECADOTRIL
     Indication: Gastrointestinal disorder
     Dosage: UNK
     Route: 064
  4. HUMAN IMMUNOGLOBULIN G [Concomitant]
     Active Substance: HUMAN IMMUNOGLOBULIN G
     Indication: Neuromyelitis optica spectrum disorder
     Dosage: 500 MG/KG
     Route: 064
  5. AZATHIOPRINE [Concomitant]
     Active Substance: AZATHIOPRINE
     Indication: Neuromyelitis optica spectrum disorder
     Dosage: 50 MG, 1X/DAY
     Route: 064
  6. CARBAMAZEPINE [Concomitant]
     Active Substance: CARBAMAZEPINE
     Indication: Neuromyelitis optica spectrum disorder
     Dosage: 100 MG, 2X/DAY
     Route: 064

REACTIONS (2)
  - Maternal exposure during pregnancy [Unknown]
  - Premature baby [Unknown]
